FAERS Safety Report 8198184-5 (Version None)
Quarter: 2012Q1

REPORT INFORMATION
  Report Type: 
  Country: None (occurrence: None)
  Receive Date: 20120309
  Receipt Date: 20111213
  Transmission Date: 20120608
  Serious: No
  Sender: FDA-Public Use
  Company Number: US-AMGEN-USASP2011066551

PATIENT
  Age: 58 Year
  Sex: Female

DRUGS (2)
  1. BENADRYL [Concomitant]
     Indication: SKIN REACTION
  2. PROLIA [Suspect]
     Indication: OSTEOPOROSIS POSTMENOPAUSAL
     Dosage: 60 MG, Q6MO

REACTIONS (1)
  - RASH PRURITIC [None]
